FAERS Safety Report 13475264 (Version 1)
Quarter: 2017Q2

REPORT INFORMATION
  Report Type: Spontaneous
  Country: BR (occurrence: BR)
  Receive Date: 20170424
  Receipt Date: 20170424
  Transmission Date: 20170830
  Serious: Yes (Death, Other)
  Sender: FDA-Public Use
  Company Number: PHHY2017BR060010

PATIENT
  Age: 94 Year
  Sex: Female
  Weight: 55 kg

DRUGS (1)
  1. HYDERGINE [Suspect]
     Active Substance: ERGOLOID MESYLATES
     Indication: DEMENTIA ALZHEIMER^S TYPE
     Dosage: 1 DF, QD
     Route: 048

REACTIONS (5)
  - Rib fracture [Unknown]
  - Fall [Unknown]
  - Amnesia [Unknown]
  - Pneumonia [Fatal]
  - Traumatic lung injury [Unknown]

NARRATIVE: CASE EVENT DATE: 201206
